FAERS Safety Report 9680178 (Version 2)
Quarter: 2014Q1

REPORT INFORMATION
  Report Type: Report from Study
  Country: DE (occurrence: DE)
  Receive Date: 20131111
  Receipt Date: 20140205
  Transmission Date: 20141002
  Serious: Yes (Hospitalization)
  Sender: FDA-Public Use
  Company Number: DE-BIOGENIDEC-2013BI106310

PATIENT
  Age: 33 Year
  Sex: Female

DRUGS (2)
  1. TYSABRI [Suspect]
     Indication: RELAPSING-REMITTING MULTIPLE SCLEROSIS
     Dates: start: 20090821
  2. LAIF (HYPERICUM PERFORATUM) [Concomitant]
     Indication: DEPRESSION
     Dates: start: 20101026

REACTIONS (1)
  - Ovarian neoplasm [Recovered/Resolved]
